FAERS Safety Report 5614685-5 (Version None)
Quarter: 2008Q1

REPORT INFORMATION
  Report Type: 
  Country: None (occurrence: None)
  Receive Date: 20080131
  Receipt Date: 20080117
  Transmission Date: 20080703
  Serious: Yes (Death, Hospitalization)
  Sender: FDA-Public Use
  Company Number: 023050

PATIENT
  Age: 17 Year
  Sex: Female

DRUGS (3)
  1. IBUPROFEN [Suspect]
     Indication: OVERDOSE
     Dosage: ORAL
     Route: 048
  2. SERTRALINE [Concomitant]
  3. ALBUTEROL [Concomitant]

REACTIONS (21)
  - ANION GAP INCREASED [None]
  - AV DISSOCIATION [None]
  - BLOOD GLUCOSE DECREASED [None]
  - BLOOD LACTIC ACID INCREASED [None]
  - BODY TEMPERATURE DECREASED [None]
  - BRAIN OEDEMA [None]
  - CONTINUOUS HAEMODIAFILTRATION [None]
  - DEPRESSED LEVEL OF CONSCIOUSNESS [None]
  - DISSEMINATED INTRAVASCULAR COAGULATION [None]
  - DRUG LEVEL INCREASED [None]
  - DRUG SCREEN POSITIVE [None]
  - ELECTROCARDIOGRAM QT PROLONGED [None]
  - HAEMODIALYSIS [None]
  - HYPOTHERMIA [None]
  - LOSS OF CONSCIOUSNESS [None]
  - METABOLIC ACIDOSIS [None]
  - MULTI-ORGAN FAILURE [None]
  - NO THERAPEUTIC RESPONSE [None]
  - OVERDOSE [None]
  - RENAL FAILURE [None]
  - VOMITING [None]
